FAERS Safety Report 7743702-1 (Version None)
Quarter: 2011Q3

REPORT INFORMATION
  Report Type: 
  Country: None (occurrence: None)
  Receive Date: 20110912
  Receipt Date: 20110906
  Transmission Date: 20111222
  Serious: Yes (Other)
  Sender: FDA-Public Use
  Company Number: GB-MERCK-1109GBR00033

PATIENT
  Age: 84 Year
  Sex: Male
  Weight: 80 kg

DRUGS (14)
  1. GLICLAZIDE [Concomitant]
     Route: 065
     Dates: start: 20110628, end: 20110822
  2. METFORMIN [Concomitant]
     Route: 065
     Dates: start: 20110725, end: 20110822
  3. OMEPRAZOLE [Concomitant]
     Route: 065
     Dates: start: 20110519
  4. CODEINE PHOSPHATE [Concomitant]
     Route: 065
     Dates: start: 20110725, end: 20110822
  5. ISOSORBIDE MONONITRATE [Concomitant]
     Route: 065
     Dates: start: 20110803
  6. PROSCAR [Suspect]
     Route: 048
     Dates: start: 20110801
  7. ENALAPRIL MALEATE [Concomitant]
     Route: 065
     Dates: start: 20110519, end: 20110822
  8. NITROGLYCERIN [Concomitant]
     Route: 065
     Dates: start: 20110803
  9. SIMVASTATIN [Concomitant]
     Route: 048
     Dates: start: 20110628
  10. TAMSULOSIN HYDROCHLORIDE [Concomitant]
     Route: 065
     Dates: start: 20110812
  11. ACETAMINOPHEN [Concomitant]
     Route: 065
     Dates: start: 20110725, end: 20110822
  12. DOXAZOSIN MESYLATE [Concomitant]
     Route: 065
     Dates: start: 20110725, end: 20110822
  13. BETAHISTINE [Concomitant]
     Route: 065
     Dates: start: 20110725, end: 20110822
  14. BISOPROLOL [Concomitant]
     Route: 065
     Dates: start: 20110812

REACTIONS (1)
  - DIARRHOEA [None]
